FAERS Safety Report 4852781-0 (Version None)
Quarter: 2005Q4

REPORT INFORMATION
  Report Type: 
  Country: None (occurrence: None)
  Receive Date: 20051214
  Receipt Date: 20051212
  Transmission Date: 20060501
  Serious: Yes (Death, Life-Threatening, Hospitalization)
  Sender: FDA-Public Use
  Company Number: US-SANOFI-SYNTHELABO-F01200502734

PATIENT
  Sex: Female

DRUGS (4)
  1. OXALIPLATIN [Suspect]
     Route: 042
     Dates: start: 20051101, end: 20051101
  2. FLUOROURACIL [Suspect]
     Dosage: 400 MG/M2 IV BOLUS AND 2400 MG/M2 IV CONTINUOUS INFUSION FOR 46 HOURS, Q2W
     Route: 042
     Dates: start: 20051101, end: 20051102
  3. LEUCOVORIN CALCIUM [Suspect]
     Route: 042
     Dates: start: 20051101, end: 20051101
  4. BEVACIZUMAB [Suspect]
     Route: 042
     Dates: start: 20051101, end: 20051101

REACTIONS (6)
  - CLOSTRIDIAL INFECTION [None]
  - DEHYDRATION [None]
  - DISEASE PROGRESSION [None]
  - HYPONATRAEMIA [None]
  - HYPOTENSION [None]
  - LARGE INTESTINE PERFORATION [None]
